FAERS Safety Report 9540798 (Version 1)
Quarter: 2013Q3

REPORT INFORMATION
  Report Type: Spontaneous
  Country: IT (occurrence: IT)
  Receive Date: 20130920
  Receipt Date: 20130920
  Transmission Date: 20140515
  Serious: Yes (Hospitalization, Other)
  Sender: FDA-Public Use
  Company Number: CHPA2013IT014204

PATIENT
  Age: 30 Year
  Sex: Female

DRUGS (2)
  1. IBUPROFEN [Suspect]
     Indication: SMOKING CESSATION THERAPY
     Dosage: 2 DF, ONCE/SINGLE
     Route: 048
     Dates: start: 20130608, end: 20130608
  2. BUPROPION [Suspect]
     Indication: SMOKING CESSATION THERAPY
     Dosage: 20 DF, ONCE/SINGLE
     Route: 048
     Dates: start: 20130608, end: 20130608

REACTIONS (6)
  - Electrocardiogram QT prolonged [Recovering/Resolving]
  - Drug abuse [Recovering/Resolving]
  - Feeling jittery [Recovering/Resolving]
  - Panic attack [Recovering/Resolving]
  - Tremor [Recovering/Resolving]
  - Incorrect dose administered [Unknown]
